FAERS Safety Report 5741993-X (Version None)
Quarter: 2008Q2

REPORT INFORMATION
  Report Type: 
  Country: None (occurrence: None)
  Receive Date: 20080519
  Receipt Date: 20080508
  Transmission Date: 20081010
  Serious: Yes (Death, Hospitalization)
  Sender: FDA-Public Use
  Company Number: CG-MERCK-0805USA01890

PATIENT
  Age: 69 Year
  Sex: Male

DRUGS (1)
  1. STROMECTOL [Suspect]
     Indication: ONCHOCERCIASIS
     Route: 048
     Dates: start: 20071110, end: 20071110

REACTIONS (6)
  - CEREBROVASCULAR ACCIDENT [None]
  - CONFUSIONAL STATE [None]
  - CONJUNCTIVAL HAEMORRHAGE [None]
  - HYPERTENSION [None]
  - MUSCLE SPASMS [None]
  - URINARY INCONTINENCE [None]
